FAERS Safety Report 14021860 (Version 2)
Quarter: 2017Q4

REPORT INFORMATION
  Report Type: Spontaneous
  Country: JP (occurrence: JP)
  Receive Date: 20170928
  Receipt Date: 20171012
  Transmission Date: 20180321
  Serious: Yes (Other)
  Sender: FDA-Public Use
  Company Number: JP-CELGENEUS-JPN-20170908285

PATIENT

DRUGS (2)
  1. DEXAMETHASONE. [Suspect]
     Active Substance: DEXAMETHASONE
     Indication: PRODUCT USED FOR UNKNOWN INDICATION
     Route: 065
  2. REVLIMID [Suspect]
     Active Substance: LENALIDOMIDE
     Indication: PRODUCT USED FOR UNKNOWN INDICATION
     Route: 048

REACTIONS (9)
  - Neutropenia [Unknown]
  - Fatigue [Unknown]
  - Rash [Unknown]
  - Tumour lysis syndrome [Unknown]
  - Thrombocytopenia [Unknown]
  - Vagus nerve disorder [Unknown]
  - Nausea [Unknown]
  - Anaemia [Unknown]
  - Hiccups [Unknown]
